FAERS Safety Report 9466528 (Version 2)
Quarter: 2013Q3

REPORT INFORMATION
  Report Type: Report from Study
  Country: CN (occurrence: CN)
  Receive Date: 20130820
  Receipt Date: 20130828
  Transmission Date: 20140515
  Serious: Yes (Other)
  Sender: FDA-Public Use
  Company Number: CN-BAXTER-2013BAX032228

PATIENT
  Sex: 0

DRUGS (1)
  1. 0.9% SODIUM CHLORIDE INJECTION [Suspect]
     Indication: HIGH FREQUENCY ABLATION
     Dosage: 1000 - 2500 ML
     Route: 038

REACTIONS (1)
  - Pneumothorax [Recovered/Resolved]
